FAERS Safety Report 16684732 (Version 1)
Quarter: 2019Q3

REPORT INFORMATION
  Report Type: Spontaneous
  Country: US (occurrence: US)
  Receive Date: 20190808
  Receipt Date: 20190808
  Transmission Date: 20191004
  Serious: Yes (Hospitalization)
  Sender: FDA-Public Use
  Company Number: US-ALLERGAN-1932281US

PATIENT
  Sex: Male
  Weight: 103.42 kg

DRUGS (1)
  1. SUCRALFATE - BP [Suspect]
     Active Substance: SUCRALFATE
     Indication: GASTRIC ULCER HAEMORRHAGE
     Dosage: 1 MG, QID
     Route: 048
     Dates: start: 20190605

REACTIONS (6)
  - Cardiac arrest [Recovered/Resolved]
  - Wrong technique in product usage process [Unknown]
  - Swelling [Recovered/Resolved]
  - Product use complaint [Unknown]
  - Chest pain [Recovered/Resolved]
  - Foreign body in respiratory tract [Recovered/Resolved]

NARRATIVE: CASE EVENT DATE: 201906
